FAERS Safety Report 7498771-3 (Version None)
Quarter: 2011Q2

REPORT INFORMATION
  Report Type: 
  Country: None (occurrence: None)
  Receive Date: 20110524
  Receipt Date: 20110517
  Transmission Date: 20111010
  Serious: No
  Sender: FDA-Public Use
  Company Number: US-PFIZER INC-2011108114

PATIENT
  Age: 81 Year
  Sex: Male

DRUGS (3)
  1. VIAGRA [Suspect]
     Dosage: 100 MG, UNK
     Route: 048
  2. VIAGRA [Suspect]
     Dosage: 50 MG, UNK
     Route: 048
  3. VIAGRA [Suspect]
     Indication: ERECTILE DYSFUNCTION
     Dosage: 25 MG, UNK
     Route: 048

REACTIONS (1)
  - DRUG INEFFECTIVE [None]
